FAERS Safety Report 5825668-4 (Version None)
Quarter: 2008Q3

REPORT INFORMATION
  Report Type: 
  Country: None (occurrence: None)
  Receive Date: 20080729
  Receipt Date: 20080717
  Transmission Date: 20090109
  Serious: Yes (Death, Hospitalization, Other)
  Sender: FDA-Public Use
  Company Number: US-ROCHE-576658

PATIENT
  Age: 51 Year
  Sex: Male

DRUGS (10)
  1. ENFUVIRTIDE [Suspect]
     Indication: HIV INFECTION
     Route: 058
     Dates: end: 20030401
  2. LOPINAVIR AND RITONAVIR [Suspect]
     Indication: HIV INFECTION
     Route: 065
  3. AMPRENAVIR [Suspect]
     Indication: HIV INFECTION
     Route: 065
  4. DELAVIRDINE [Suspect]
     Indication: HIV INFECTION
     Route: 065
  5. ABACAVIR [Suspect]
     Indication: HIV INFECTION
     Route: 065
  6. DIDANOSINE [Suspect]
     Indication: HIV INFECTION
     Route: 065
  7. T-1249 [Suspect]
     Indication: HIV INFECTION
     Route: 058
     Dates: start: 20030401, end: 20050201
  8. SULFAMETHOXAZOLE AND TRIMETHOPRIM [Concomitant]
     Indication: OPPORTUNISTIC INFECTION PROPHYLAXIS
     Dates: start: 20010301
  9. AZITHROMYCIN [Concomitant]
     Indication: OPPORTUNISTIC INFECTION PROPHYLAXIS
  10. VANCOMYCIN HCL [Concomitant]

REACTIONS (11)
  - BACTERIAL DISEASE CARRIER [None]
  - BURSITIS INFECTIVE STAPHYLOCOCCAL [None]
  - CELLULITIS STAPHYLOCOCCAL [None]
  - HIV INFECTION [None]
  - PNEUMONIA STAPHYLOCOCCAL [None]
  - SEPTIC SHOCK [None]
  - STAPHYLOCOCCAL ABSCESS [None]
  - STAPHYLOCOCCAL BACTERAEMIA [None]
  - STAPHYLOCOCCAL SEPSIS [None]
  - STAPHYLOCOCCAL SKIN INFECTION [None]
  - URINARY TRACT INFECTION STAPHYLOCOCCAL [None]
